FAERS Safety Report 9202013 (Version 1)
Quarter: 2013Q2

REPORT INFORMATION
  Report Type: Spontaneous
  Country: US (occurrence: US)
  Receive Date: 20130401
  Receipt Date: 20130401
  Transmission Date: 20140414
  Serious: Yes (Hospitalization)
  Sender: FDA-Public Use
  Company Number: US-BAYER-2013-037685

PATIENT
  Age: 45 Year
  Sex: Female

DRUGS (25)
  1. YAZ [Suspect]
  2. LISINOPRIL [Concomitant]
     Dosage: UNK
     Dates: start: 20090624
  3. LISINOPRIL [Concomitant]
     Dosage: UNK
     Dates: start: 20090811
  4. SINGULAIR [Concomitant]
     Dosage: UNK
     Dates: start: 20090624
  5. SINGULAIR [Concomitant]
     Dosage: UNK
     Dates: start: 20090811
  6. ALLEGRA [Concomitant]
  7. ALLEGRA-D [Concomitant]
     Dosage: UNK
     Dates: start: 20090624
  8. ALLEGRA-D [Concomitant]
     Dosage: UNK
     Dates: start: 20090811
  9. EFFEXOR XR [Concomitant]
     Dosage: UNK
     Dates: start: 20090618
  10. EFFEXOR XR [Concomitant]
     Dosage: UNK
     Dates: start: 20090803
  11. ZIAC [Concomitant]
     Dosage: UNK
     Dates: start: 20090624
  12. ZIAC [Concomitant]
     Dosage: UNK
     Dates: start: 20090811
  13. EFFEXOR [Concomitant]
     Dosage: UNK
     Dates: start: 20090624
  14. EFFEXOR [Concomitant]
     Dosage: UNK
     Dates: start: 20090811
  15. TRIAZONE [Concomitant]
     Dosage: UNK
     Dates: start: 20090624
  16. TRIAZONE [Concomitant]
     Dosage: UNK
     Dates: start: 20090811
  17. PRILOSEC [Concomitant]
     Dosage: UNK
     Dates: start: 20090624
  18. PRILOSEC [Concomitant]
     Dosage: UNK
     Dates: start: 20090811
  19. BUSPAR [Concomitant]
     Dosage: UNK
     Dates: start: 20090624
  20. BUSPAR [Concomitant]
     Dosage: UNK
     Dates: start: 20090811
  21. TRAZODONE [Concomitant]
     Dosage: UNK
     Dates: start: 20090630
  22. TRIAMCINOLONE [Concomitant]
     Dosage: 0.1 %, UNK
     Dates: start: 20090630
  23. ZOLPIDEM [Concomitant]
     Dosage: UNK
     Dates: start: 20090605
  24. AMOXICILLIN [Concomitant]
     Dosage: UNK
     Dates: start: 20090621
  25. PROMETRIUM [Concomitant]

REACTIONS (2)
  - Deep vein thrombosis [Recovered/Resolved]
  - Thrombophlebitis superficial [None]
